FAERS Safety Report 5020712-9 (Version None)
Quarter: 2006Q2

REPORT INFORMATION
  Report Type: 
  Country: None (occurrence: None)
  Receive Date: 20060601
  Receipt Date: 20060524
  Transmission Date: 20061013
  Serious: Yes (Death, Hospitalization)
  Sender: FDA-Public Use
  Company Number: 2006-BP-05920BP

PATIENT
  Age: 1 Day
  Sex: Male
  Weight: 2.7 kg

DRUGS (5)
  1. VIRAMUNE [Suspect]
     Indication: NEONATAL INFECTION
     Dosage: 12 MG PO
     Route: 048
     Dates: start: 20060412, end: 20060412
  2. VIRAMUNE [Suspect]
     Indication: PROPHYLAXIS AGAINST HIV INFECTION
     Dosage: 12 MG PO
     Route: 048
     Dates: start: 20060412, end: 20060412
  3. VIRAMUNE [Suspect]
     Indication: NEONATAL INFECTION
     Dosage: 12 MG PO
     Route: 048
     Dates: start: 20060414, end: 20060414
  4. VIRAMUNE [Suspect]
     Indication: PROPHYLAXIS AGAINST HIV INFECTION
     Dosage: 12 MG PO
     Route: 048
     Dates: start: 20060414, end: 20060414
  5. ZIDOVUDINE [Suspect]
     Indication: PROPHYLAXIS AGAINST HIV INFECTION
     Dosage: 24 MG (12 MG BID), PO
     Route: 048
     Dates: start: 20060412, end: 20060417

REACTIONS (10)
  - BLOOD SODIUM INCREASED [None]
  - DEHYDRATION [None]
  - GASTROENTERITIS [None]
  - LACTIC ACIDOSIS [None]
  - METABOLIC ACIDOSIS [None]
  - MULTI-ORGAN FAILURE [None]
  - NEONATAL DISORDER [None]
  - RENAL FAILURE NEONATAL [None]
  - SEPSIS NEONATAL [None]
  - THROMBOCYTOPENIA NEONATAL [None]
